FAERS Safety Report 24995768 (Version 1)
Quarter: 2025Q1

REPORT INFORMATION
  Report Type: Report from Study
  Country: CA (occurrence: CA)
  Receive Date: 20250221
  Receipt Date: 20250221
  Transmission Date: 20250408
  Serious: Yes (Other)
  Sender: TAKEDA
  Company Number: CA-TAKEDA-2025TUS016464

PATIENT
  Age: 60 Year
  Sex: Female

DRUGS (13)
  1. VEDOLIZUMAB [Suspect]
     Active Substance: VEDOLIZUMAB
     Indication: Colitis ulcerative
  2. VEDOLIZUMAB [Suspect]
     Active Substance: VEDOLIZUMAB
     Dosage: 300 MILLIGRAM, Q4WEEKS
     Dates: start: 20211222
  3. CITALOPRAM [Concomitant]
     Active Substance: CITALOPRAM
  4. INVOKANA [Concomitant]
     Active Substance: CANAGLIFLOZIN
  5. METFORMIN [Concomitant]
     Active Substance: METFORMIN HYDROCHLORIDE
  6. ATORVASTATIN [Concomitant]
     Active Substance: ATORVASTATIN
  7. BISOPROLOL [Concomitant]
     Active Substance: BISOPROLOL
  8. LANTUS [Concomitant]
     Active Substance: INSULIN GLARGINE
  9. PANTOPRAZOLE [Concomitant]
     Active Substance: PANTOPRAZOLE
  10. CANDESARTAN [Concomitant]
     Active Substance: CANDESARTAN
  11. OZEMPIC [Concomitant]
     Active Substance: SEMAGLUTIDE
  12. METHOTREXATE [Concomitant]
     Active Substance: METHOTREXATE
  13. XARELTO [Concomitant]
     Active Substance: RIVAROXABAN

REACTIONS (2)
  - Angiogram [Unknown]
  - Off label use [Unknown]

NARRATIVE: CASE EVENT DATE: 20211222
